FAERS Safety Report 24638563 (Version 2)
Quarter: 2024Q4

REPORT INFORMATION
  Report Type: Spontaneous
  Country: US (occurrence: US)
  Receive Date: 20241119
  Receipt Date: 20241216
  Transmission Date: 20250115
  Serious: No
  Sender: BAYER HEALTHCARE PHARMACEUTICALS INC.
  Company Number: US-BAYER-2024A163389

PATIENT
  Sex: Female

DRUGS (2)
  1. ESTRADIOL [Suspect]
     Active Substance: ESTRADIOL
     Route: 062
  2. PROGESTERONE [Concomitant]
     Active Substance: PROGESTERONE
     Dosage: 200 MG

REACTIONS (5)
  - Device adhesion issue [None]
  - Device material issue [None]
  - Application site pruritus [None]
  - Application site irritation [None]
  - Wrong technique in product usage process [None]
